FAERS Safety Report 14625198 (Version 2)
Quarter: 2018Q1

REPORT INFORMATION
  Report Type: Spontaneous
  Country: US (occurrence: US)
  Receive Date: 20180312
  Receipt Date: 20180326
  Transmission Date: 20180509
  Serious: Yes (Other)
  Sender: FDA-Public Use
  Company Number: US-TEVA-2018-US-867581

PATIENT
  Sex: Female

DRUGS (1)
  1. CARBAMAZEPINE. [Suspect]
     Active Substance: CARBAMAZEPINE
     Indication: SEIZURE
     Dosage: 600 MILLIGRAM DAILY;
     Dates: start: 1978

REACTIONS (3)
  - Depression [Recovered/Resolved]
  - Seizure [Recovered/Resolved with Sequelae]
  - Weight decreased [Recovered/Resolved]
